FAERS Safety Report 17132851 (Version 1)
Quarter: 2019Q4

REPORT INFORMATION
  Report Type: Spontaneous
  Country: DK (occurrence: DK)
  Receive Date: 20191210
  Receipt Date: 20191210
  Transmission Date: 20200122
  Serious: Yes (Hospitalization)
  Sender: FDA-Public Use
  Company Number: DK-TEVA-2019-DK-1147872

PATIENT
  Age: 73 Year
  Sex: Female

DRUGS (15)
  1. BRICANYL [Concomitant]
     Active Substance: TERBUTALINE SULFATE
     Indication: ASTHMA
     Dosage: STRENGTH: 0,5 MG/DOSIS?DOSE UNKNOWN
     Route: 055
     Dates: start: 20171207
  2. ENALAPRIL [Concomitant]
     Active Substance: ENALAPRIL
     Indication: BLOOD PRESSURE ABNORMAL
     Dosage: STRENGTH: 20 MG
     Route: 048
     Dates: start: 20180211
  3. CITALOPRAM [Concomitant]
     Active Substance: CITALOPRAM HYDROBROMIDE
     Indication: DEPRESSION
     Dosage: STRENGTH: 40 MG
     Route: 048
     Dates: start: 20171125
  4. OXAZEPAM. [Concomitant]
     Active Substance: OXAZEPAM
     Indication: ANXIETY
     Dosage: STRENGTH: 15 MG
     Route: 048
     Dates: start: 20180220
  5. BENADRYL [Concomitant]
     Active Substance: DIPHENHYDRAMINE HYDROCHLORIDE
     Indication: SEASONAL ALLERGY
     Dosage: STRENGTH: 8 MG
     Route: 048
     Dates: start: 20171207
  6. PANTOPRAZOLE ^TEVA^ [Suspect]
     Active Substance: PANTOPRAZOLE SODIUM
     Indication: GASTROOESOPHAGEAL REFLUX DISEASE
     Dosage: STRENGTH: 40 MG?UNKNOWN START DATE BUT HAS BEEN THROUGH A SERIES
     Route: 048
  7. DERMOVAT [Concomitant]
     Active Substance: CLOBETASOL
     Indication: SKIN DISORDER
     Dosage: STRENGTH: 0,5 MG/G
     Route: 003
     Dates: start: 20190820
  8. ESTRING [Concomitant]
     Active Substance: ESTRADIOL
     Indication: HORMONE THERAPY
     Dosage: STRENGTH: 7,5 MIKROGRAM/ 24 TIMER?EVERY 3 MONTHS UNTIL FEBRUARY 2109 THEREAFTER EVERY 6 MONTHS
     Route: 067
     Dates: start: 20180211
  9. TRANEXAMIC ACID. [Concomitant]
     Active Substance: TRANEXAMIC ACID
     Indication: HAEMORRHAGE
     Dosage: STRENGTH: 500 MG
     Route: 048
     Dates: start: 20191011
  10. ZOPICLONE [Concomitant]
     Active Substance: ZOPICLONE
     Indication: INSOMNIA
     Dosage: STRENGTH: 7,5 MG?FROM 03 SEP 2019 15MG ONCE DAYLIGHT THEN ADD 7.5 MG DAYLIGHT
     Route: 048
     Dates: start: 20171214
  11. OXYCODONE [Concomitant]
     Active Substance: OXYCODONE
     Indication: PAIN
     Dosage: STRENGTH: 5 MG?MAXIMUM 4 TIMES DAYLIGHT
     Route: 048
     Dates: start: 20191001
  12. SIMVASTATIN. [Concomitant]
     Active Substance: SIMVASTATIN
     Indication: BLOOD CHOLESTEROL INCREASED
     Dosage: STRENGTH: 40 MG
     Route: 048
     Dates: start: 20171114
  13. PARACETAMOL [Concomitant]
     Active Substance: ACETAMINOPHEN
     Indication: PAIN
     Dosage: STRENGTH: 500 MG
     Route: 048
     Dates: start: 20171114
  14. PULMICORT TURBUHALER [Concomitant]
     Active Substance: BUDESONIDE
     Indication: ASTHMA
     Dosage: STRENGTH: 200 MIKROGRAM/DOSIS
     Route: 055
     Dates: start: 20181119
  15. IBUPROFEN. [Concomitant]
     Active Substance: IBUPROFEN
     Indication: PAIN
     Dosage: STRENGTH: 400 MG
     Route: 048
     Dates: start: 20191019

REACTIONS (4)
  - Wound haemorrhage [Recovering/Resolving]
  - Postoperative wound infection [Recovering/Resolving]
  - C-reactive protein increased [Recovering/Resolving]
  - Sepsis [Recovering/Resolving]

NARRATIVE: CASE EVENT DATE: 201910
